FAERS Safety Report 17772356 (Version 2)
Quarter: 2020Q4

REPORT INFORMATION
  Report Type: Spontaneous
  Country: US (occurrence: US)
  Receive Date: 20200512
  Receipt Date: 20201221
  Transmission Date: 20210113
  Serious: Yes (Other)
  Sender: FDA-Public Use
  Company Number: US-GILEAD-2020-0466373

PATIENT
  Sex: Male

DRUGS (4)
  1. KALETRA [Concomitant]
     Active Substance: LOPINAVIR\RITONAVIR
  2. TRUVADA [Suspect]
     Active Substance: EMTRICITABINE\TENOFOVIR DISOPROXIL FUMARATE
     Indication: HIV INFECTION
     Dosage: UNK
     Route: 048
     Dates: start: 2005
  3. BIKTARVY [Concomitant]
     Active Substance: BICTEGRAVIR SODIUM\EMTRICITABINE\TENOFOVIR ALAFENAMIDE FUMARATE
  4. VIREAD [Suspect]
     Active Substance: TENOFOVIR DISOPROXIL FUMARATE
     Indication: HIV INFECTION
     Dosage: UNK
     Route: 048
     Dates: start: 200110

REACTIONS (9)
  - Renal injury [Unknown]
  - Blood creatinine increased [Not Recovered/Not Resolved]
  - Osteonecrosis [Unknown]
  - Bone density decreased [Unknown]
  - Bone loss [Unknown]
  - Renal failure [Unknown]
  - Skeletal injury [Unknown]
  - Chronic kidney disease [Not Recovered/Not Resolved]
  - Multiple fractures [Unknown]

NARRATIVE: CASE EVENT DATE: 2017
